FAERS Safety Report 22059899 (Version 2)
Quarter: 2023Q2

REPORT INFORMATION
  Report Type: Spontaneous
  Country: US (occurrence: US)
  Receive Date: 20230303
  Receipt Date: 20230410
  Transmission Date: 20230722
  Serious: No
  Sender: FDA-Public Use
  Company Number: US-SA-SAC20230302000507

PATIENT
  Age: 4 Year
  Sex: Male
  Weight: 18 kg

DRUGS (4)
  1. DUPIXENT [Suspect]
     Active Substance: DUPILUMAB
     Indication: Dermatitis atopic
     Dosage: 300 MG, Q4W
     Route: 058
     Dates: start: 20220826
  2. DUPIXENT [Suspect]
     Active Substance: DUPILUMAB
     Indication: Dermatitis allergic
     Dosage: 300 MG, Q4W
     Route: 058
     Dates: start: 20220101, end: 20221101
  3. HYDROXYZINE [Concomitant]
     Active Substance: HYDROXYZINE HYDROCHLORIDE
     Indication: Dermatitis atopic
     Dosage: DOSE: 10 MG NIGHTLY
  4. FLUOCINONIDE [Concomitant]
     Active Substance: FLUOCINONIDE
     Indication: Dermatitis atopic
     Dosage: DOSAGE: 0.05% OINTMENT FREQUENCY: EVERY 2 WEEKS
     Route: 061

REACTIONS (3)
  - Headache [Not Recovered/Not Resolved]
  - Anal incontinence [Not Recovered/Not Resolved]
  - Pruritus [Recovered/Resolved]
